FAERS Safety Report 10563175 (Version 1)
Quarter: 2014Q4

REPORT INFORMATION
  Report Type: Spontaneous
  Country: US (occurrence: None)
  Receive Date: 20141103
  Receipt Date: 20141103
  Transmission Date: 20150529
  Serious: Yes (Other)
  Sender: FDA-Public Use
  Company Number: None

PATIENT
  Age: 50 Year
  Sex: Female
  Weight: 70.31 kg

DRUGS (1)
  1. CIPROFLOXACIN. [Suspect]
     Active Substance: CIPROFLOXACIN
     Indication: URINARY TRACT INFECTION
     Dosage: 1 PILL, TWICE DAILY, TAKEN BY MOUTH
     Route: 048

REACTIONS (10)
  - Somnolence [None]
  - Burning sensation [None]
  - Impaired work ability [None]
  - Anxiety [None]
  - Memory impairment [None]
  - Gait disturbance [None]
  - Pain in extremity [None]
  - Fatigue [None]
  - Depression [None]
  - Muscular weakness [None]

NARRATIVE: CASE EVENT DATE: 20141003
